FAERS Safety Report 8491660-7 (Version None)
Quarter: 2012Q3

REPORT INFORMATION
  Report Type: 
  Country: None (occurrence: None)
  Receive Date: 20120706
  Receipt Date: 20120627
  Transmission Date: 20120928
  Serious: Yes (Death, Hospitalization)
  Sender: FDA-Public Use
  Company Number: DE-BRISTOL-MYERS SQUIBB COMPANY-16726515

PATIENT
  Age: 45 Year
  Sex: Male
  Weight: 75 kg

DRUGS (10)
  1. ANTIHISTAMINE DRUGS [Concomitant]
     Indication: PREMEDICATION
     Dates: start: 20120327, end: 20120327
  2. CORTICOSTEROID [Concomitant]
     Indication: PREMEDICATION
     Dosage: 12MG:27-27MAR12 12MG:3-3APR12
     Route: 042
     Dates: start: 20120327, end: 20120403
  3. PANTOPRAZOLE [Concomitant]
     Indication: PAIN
     Dates: start: 20120301, end: 20120609
  4. ERBITUX [Suspect]
     Indication: COLORECTAL CANCER
     Dosage: LOADING DOSE:400MG/M2:27-27MAR12 MAINTENANCE DOSE:250MG/M2:03APR-05JUN12(63DYS)
     Route: 042
     Dates: start: 20120327, end: 20120605
  5. FLUOROURACIL [Concomitant]
     Indication: COLORECTAL CANCER METASTATIC
     Route: 042
     Dates: start: 20120327
  6. IRINOTECAN HCL [Concomitant]
     Indication: COLORECTAL CANCER METASTATIC
     Route: 042
     Dates: start: 20120605
  7. LEUCOVORIN CALCIUM [Concomitant]
     Indication: COLORECTAL CANCER METASTATIC
     Route: 042
     Dates: start: 20120327
  8. OXALIPLATIN [Concomitant]
     Indication: COLORECTAL CANCER METASTATIC
     Route: 042
     Dates: start: 20120327
  9. HYDROMORPHONE HCL [Concomitant]
     Indication: PAIN
     Dates: start: 20120301, end: 20120609
  10. ACETAMINOPHEN [Concomitant]
     Indication: PAIN
     Dates: start: 20120301, end: 20120609

REACTIONS (2)
  - ILEUS [None]
  - DIARRHOEA [None]
